FAERS Safety Report 9704850 (Version 1)
Quarter: 2013Q4

REPORT INFORMATION
  Report Type: Spontaneous
  Country: BR (occurrence: BR)
  Receive Date: 20131122
  Receipt Date: 20131122
  Transmission Date: 20140711
  Serious: Yes (Other)
  Sender: FDA-Public Use
  Company Number: BR-SANOFI-AVENTIS-2013SA012083

PATIENT
  Age: 41 Year
  Sex: Female
  Weight: 65 kg

DRUGS (2)
  1. CLEXANE [Suspect]
     Indication: THROMBOSIS
     Route: 058
     Dates: start: 20130201
  2. FOLIC ACID [Concomitant]
     Route: 048
     Dates: start: 201211

REACTIONS (3)
  - Foetal heart rate abnormal [Not Recovered/Not Resolved]
  - Exposure during pregnancy [Unknown]
  - Abortion [Unknown]
